FAERS Safety Report 11337406 (Version 1)
Quarter: 2015Q3

REPORT INFORMATION
  Report Type: Spontaneous
  Country: US (occurrence: US)
  Receive Date: 20150803
  Receipt Date: 20150803
  Transmission Date: 20151125
  Serious: No
  Sender: FDA-Public Use
  Company Number: US-ELI_LILLY_AND_COMPANY-US200711000573

PATIENT
  Age: 46 Year
  Sex: Female
  Weight: 70.75 kg

DRUGS (4)
  1. ZYPREXA [Suspect]
     Active Substance: OLANZAPINE
     Dosage: 10 MG, UNK
     Dates: start: 20020215, end: 20020315
  2. ZYPREXA [Suspect]
     Active Substance: OLANZAPINE
     Dosage: 20 MG, UNK
     Dates: start: 200203, end: 20040526
  3. SEROQUEL [Concomitant]
     Active Substance: QUETIAPINE FUMARATE
     Dates: start: 20050208, end: 20050412
  4. LEXAPRO [Concomitant]
     Active Substance: ESCITALOPRAM OXALATE
     Dates: start: 20031020, end: 20060117

REACTIONS (7)
  - Diabetes mellitus [Not Recovered/Not Resolved]
  - Vision blurred [Unknown]
  - Mumps [Unknown]
  - Hyperglycaemia [Unknown]
  - Hypertension [Unknown]
  - Myocardial ischaemia [Unknown]
  - Blood triglycerides increased [Unknown]

NARRATIVE: CASE EVENT DATE: 200310
